FAERS Safety Report 10076206 (Version 1)
Quarter: 2014Q2

REPORT INFORMATION
  Report Type: Spontaneous
  Country: NL (occurrence: NL)
  Receive Date: 20140414
  Receipt Date: 20140414
  Transmission Date: 20141212
  Serious: Yes (Other)
  Sender: FDA-Public Use
  Company Number: NL-ACTAVIS-2014-06876

PATIENT
  Age: 66 Year
  Sex: Female

DRUGS (5)
  1. DICLOFENACNATRIUM ACTAVIS [Suspect]
     Indication: BACK PAIN
     Dosage: 50 MG, BID
     Route: 065
     Dates: start: 20140326, end: 20140326
  2. DICLOFENACNATRIUM ACTAVIS [Suspect]
     Dosage: 50 MG, TID
     Route: 065
     Dates: start: 20140327
  3. OMEPRAZOL                          /00661201/ [Concomitant]
     Indication: PRODUCT USED FOR UNKNOWN INDICATION
     Route: 065
  4. LEVOCETIRIZINE [Concomitant]
     Indication: PRODUCT USED FOR UNKNOWN INDICATION
  5. TAVEGYL [Concomitant]
     Indication: PRODUCT USED FOR UNKNOWN INDICATION

REACTIONS (9)
  - Vomiting [Recovering/Resolving]
  - Asthenia [Recovering/Resolving]
  - Headache [Recovering/Resolving]
  - Abdominal pain upper [Recovering/Resolving]
  - Drug ineffective [Recovering/Resolving]
  - Decreased appetite [Recovering/Resolving]
  - Condition aggravated [Recovering/Resolving]
  - Malaise [Recovering/Resolving]
  - Diarrhoea [Recovering/Resolving]
